FAERS Safety Report 5811048-4 (Version None)
Quarter: 2008Q3

REPORT INFORMATION
  Report Type: 
  Country: None (occurrence: None)
  Receive Date: 20080710
  Receipt Date: 20080630
  Transmission Date: 20090109
  Serious: Yes (Other)
  Sender: FDA-Public Use
  Company Number: 19599

PATIENT
  Age: 58 Year
  Sex: Female
  Weight: 61 kg

DRUGS (5)
  1. FLUOROURACIL [Suspect]
     Indication: BREAST CANCER
     Dosage: 200 MG IV
     Route: 042
     Dates: start: 20080425
  2. CYCLOPHOSPHAMIDE [Suspect]
     Indication: BREAST CANCER
     Dosage: 800 MG IV
     Route: 042
     Dates: start: 20080425
  3. EPIRUBICIN [Suspect]
     Indication: BREAST CANCER
     Dosage: 160 MG IV
     Route: 042
     Dates: start: 20080425
  4. BENZYDAMINE [Concomitant]
  5. LANSOPRAZOLE [Concomitant]

REACTIONS (1)
  - NEUTROPENIC SEPSIS [None]
